FAERS Safety Report 12377164 (Version 1)
Quarter: 2016Q2

REPORT INFORMATION
  Report Type: Report from Study
  Country: US (occurrence: US)
  Receive Date: 20160517
  Receipt Date: 20160517
  Transmission Date: 20160815
  Serious: No
  Sender: FDA-Public Use
  Company Number: US-MALLINCKRODT-T201504804

PATIENT
  Age: 57 Year
  Sex: Female

DRUGS (1)
  1. REPOSITORY CORTICOTROPIN INJECTION [Suspect]
     Active Substance: CORTICOTROPIN
     Indication: PSORIATIC ARTHROPATHY
     Dosage: 80 UNITS DAILY X10 DAYS
     Route: 058
     Dates: start: 20151007, end: 20151016

REACTIONS (3)
  - Asthenia [Recovering/Resolving]
  - Stomatitis [Recovering/Resolving]
  - Oral mucosal blistering [Recovering/Resolving]

NARRATIVE: CASE EVENT DATE: 20151007
